FAERS Safety Report 13864865 (Version 2)
Quarter: 2017Q3

REPORT INFORMATION
  Report Type: Spontaneous
  Country: US (occurrence: US)
  Receive Date: 20170814
  Receipt Date: 20170816
  Transmission Date: 20171127
  Serious: No
  Sender: FDA-Public Use
  Company Number: PHHY2017US115057

PATIENT
  Sex: Female

DRUGS (3)
  1. HYZAAR [Concomitant]
     Active Substance: HYDROCHLOROTHIAZIDE\LOSARTAN POTASSIUM
     Indication: BLOOD PRESSURE MEASUREMENT
     Route: 065
  2. ODOMZO [Suspect]
     Active Substance: SONIDEGIB
     Indication: BASAL CELL CARCINOMA
     Route: 065
  3. LIPITOR [Concomitant]
     Active Substance: ATORVASTATIN CALCIUM
     Indication: BLOOD CHOLESTEROL
     Dosage: UNK
     Route: 065

REACTIONS (4)
  - Pain in extremity [Unknown]
  - Drug ineffective [Unknown]
  - Pain [Unknown]
  - Myalgia [Unknown]
